FAERS Safety Report 4726661-5 (Version None)
Quarter: 2005Q3

REPORT INFORMATION
  Report Type: 
  Country: None (occurrence: None)
  Receive Date: 20050725
  Receipt Date: 20050505
  Transmission Date: 20060218
  Serious: No
  Sender: FDA-Public Use
  Company Number: USA050597387

PATIENT
  Age: 39 Year
  Sex: Male
  Weight: 75 kg

DRUGS (6)
  1. STRATTERA [Suspect]
     Indication: PSYCHOMOTOR HYPERACTIVITY
     Dosage: 100 MG
     Dates: start: 20050301
  2. TRAZODONE HCL [Concomitant]
  3. SEROQUEL [Concomitant]
  4. REMERON (MIRTAZAPINE ORIFARM) [Concomitant]
  5. XANAX (ALPRAZOLAM DUM) [Concomitant]
  6. CAMPRAL [Concomitant]

REACTIONS (3)
  - DRUG INEFFECTIVE [None]
  - FATIGUE [None]
  - TREMOR [None]
